FAERS Safety Report 5410852-4 (Version None)
Quarter: 2007Q3

REPORT INFORMATION
  Report Type: 
  Country: None (occurrence: None)
  Receive Date: 20070810
  Receipt Date: 20070807
  Transmission Date: 20080115
  Serious: Yes (Other)
  Sender: FDA-Public Use
  Company Number: PHEH2007US07989

PATIENT

DRUGS (2)
  1. DIOVAN [Suspect]
     Indication: HYPERTENSION
     Dosage: 160MG, UNK
     Route: 048
     Dates: start: 20050101
  2. PROTONIX [Suspect]
     Indication: ULCER
     Dosage: UNK, UNK
     Route: 048

REACTIONS (4)
  - ANGIOEDEMA [None]
  - DRUG INTERACTION [None]
  - PHARYNGEAL OEDEMA [None]
  - ULCER [None]
